FAERS Safety Report 18273327 (Version 1)
Quarter: 2020Q3

REPORT INFORMATION
  Report Type: Spontaneous
  Country: US (occurrence: US)
  Receive Date: 20200916
  Receipt Date: 20200916
  Transmission Date: 20201103
  Serious: No
  Sender: FDA-Public Use
  Company Number: US-THERAPEUTICSMD-2020TMD02887

PATIENT
  Age: 7 Decade
  Sex: Female
  Weight: 70.75 kg

DRUGS (5)
  1. IMVEXXY [Suspect]
     Active Substance: ESTRADIOL
     Dosage: 4 ?G, 2X/WEEK AT BEDTIME
     Route: 067
     Dates: start: 2020
  2. UNSPECIFIED THYROID MEDICATION [Concomitant]
     Active Substance: UNSPECIFIED INGREDIENT
  3. UNSPECIFIED MIGRAINE MEDICATIONS [Concomitant]
  4. IMVEXXY [Suspect]
     Active Substance: ESTRADIOL
     Indication: MENOPAUSAL SYMPTOMS
     Dosage: 4 ?G ^INITIAL RAMP UP^ AT BEDTIME
     Route: 067
     Dates: start: 2020, end: 2020
  5. UNSPECIFIED ALLERGY MEDICATIONS [Concomitant]

REACTIONS (12)
  - Speech disorder [Not Recovered/Not Resolved]
  - Dysphonia [Not Recovered/Not Resolved]
  - Off label use [Not Recovered/Not Resolved]
  - Breast tenderness [Not Recovered/Not Resolved]
  - Chest discomfort [Not Recovered/Not Resolved]
  - Cough [Not Recovered/Not Resolved]
  - Dyspnoea [Not Recovered/Not Resolved]
  - Wheezing [Not Recovered/Not Resolved]
  - Throat clearing [Not Recovered/Not Resolved]
  - Muscle spasms [Not Recovered/Not Resolved]
  - Hot flush [Not Recovered/Not Resolved]
  - Weight increased [Not Recovered/Not Resolved]

NARRATIVE: CASE EVENT DATE: 2020
